FAERS Safety Report 12488113 (Version 4)
Quarter: 2016Q3

REPORT INFORMATION
  Report Type: Spontaneous
  Country: US (occurrence: US)
  Receive Date: 20160622
  Receipt Date: 20160912
  Transmission Date: 20161109
  Serious: No
  Sender: FDA-Public Use
  Company Number: US-PFIZER INC-2016309836

PATIENT
  Age: 79 Year
  Sex: Female
  Weight: 60 kg

DRUGS (5)
  1. PREMARIN [Suspect]
     Active Substance: ESTROGENS, CONJUGATED
     Indication: INFECTION PROPHYLAXIS
     Dosage: 1 PEA SIZE AMOUNT ON END OF FINGER AROUND URETHRAL AREA, 3 TIMES WEEKLY, 0.625 MG
     Route: 067
     Dates: start: 20160512
  2. PREMARIN [Suspect]
     Active Substance: ESTROGENS, CONJUGATED
     Dosage: 1 G, 3X WEEKLY
     Route: 067
     Dates: start: 20160612
  3. PREMARIN [Suspect]
     Active Substance: ESTROGENS, CONJUGATED
     Dosage: AN INCH PLACING IT INTERNALLY FOR 6 WEEKS
  4. PREMARIN [Suspect]
     Active Substance: ESTROGENS, CONJUGATED
     Dosage: 1 G, 3X WEEKLY
     Route: 067
     Dates: start: 20160612
  5. PREMARIN [Suspect]
     Active Substance: ESTROGENS, CONJUGATED
     Dosage: 1 G 3X WEEKLY
     Route: 067
     Dates: start: 20160619

REACTIONS (2)
  - Intentional product misuse [Unknown]
  - Drug ineffective for unapproved indication [Not Recovered/Not Resolved]

NARRATIVE: CASE EVENT DATE: 20160512
